FAERS Safety Report 8896066 (Version 1)
Quarter: 2012Q4

REPORT INFORMATION
  Report Type: Report from Study
  Country: IT (occurrence: IT)
  Receive Date: 20121108
  Receipt Date: 20121108
  Transmission Date: 20130627
  Serious: Yes (Death, Other)
  Sender: FDA-Public Use
  Company Number: IT-CELGENEUS-083-21660-12042953

PATIENT
  Age: 45 Year
  Sex: Female
  Weight: 50 kg

DRUGS (1)
  1. ABRAXANE [Suspect]
     Indication: BREAST CANCER
     Route: 041
     Dates: start: 201201

REACTIONS (14)
  - Cardiotoxicity [Unknown]
  - Neuropathy peripheral [Unknown]
  - Bone pain [Unknown]
  - Anaemia [Unknown]
  - Nausea [Unknown]
  - Vomiting [Unknown]
  - Stomatitis [Unknown]
  - Thrombocytopenia [Unknown]
  - Neutropenia [Unknown]
  - Rash [Unknown]
  - Diarrhoea [Unknown]
  - Palmar-plantar erythrodysaesthesia syndrome [Unknown]
  - Death [Fatal]
  - Neurotoxicity [Unknown]
